FAERS Safety Report 6446329-7 (Version None)
Quarter: 2009Q4

REPORT INFORMATION
  Report Type: 
  Country: None (occurrence: None)
  Receive Date: 20091119
  Receipt Date: 20091019
  Transmission Date: 20100525
  Serious: No
  Sender: FDA-Public Use
  Company Number: US-BAYER-200915825BCC

PATIENT
  Age: 70 Year
  Sex: Female
  Weight: 86 kg

DRUGS (3)
  1. ALEVE [Suspect]
     Indication: ARTHRITIS
     Dosage: TOTAL DAILY DOSE: 440 MG  UNIT DOSE: 220 MG
     Route: 048
     Dates: start: 20091018
  2. UNKNOWN THYROID PILL [Concomitant]
     Route: 065
  3. UNKNOWN WATER PILL [Concomitant]
     Route: 065

REACTIONS (1)
  - DIZZINESS [None]
